FAERS Safety Report 5121454-1 (Version None)
Quarter: 2006Q4

REPORT INFORMATION
  Report Type: 
  Country: None (occurrence: None)
  Receive Date: 20061003
  Receipt Date: 20060923
  Transmission Date: 20070319
  Serious: Yes (Other)
  Sender: FDA-Public Use
  Company Number: 2006115285

PATIENT
  Age: 5 Year
  Sex: Male

DRUGS (1)
  1. GENOTROPIN [Suspect]
     Dosage: 0.4 MG (DAILY)
     Dates: start: 20050701

REACTIONS (4)
  - EYELID OEDEMA [None]
  - HEADACHE [None]
  - HYPERTHERMIA [None]
  - REACTION TO DRUG EXCIPIENTS [None]
